FAERS Safety Report 7070719-5 (Version None)
Quarter: 2010Q4

REPORT INFORMATION
  Report Type: 
  Country: None (occurrence: None)
  Receive Date: 20101029
  Receipt Date: 20100916
  Transmission Date: 20110411
  Serious: Yes (Hospitalization, Other)
  Sender: FDA-Public Use
  Company Number: US-BAYER-200941995NA

PATIENT
  Age: 36 Year
  Sex: Female

DRUGS (11)
  1. YASMIN [Suspect]
     Indication: CONTRACEPTION
     Dosage: 1 PER DAY
     Route: 065
     Dates: start: 20060906, end: 20071114
  2. CIPROFLOXACIN [Concomitant]
     Indication: PRODUCT USED FOR UNKNOWN INDICATION
     Route: 065
     Dates: start: 20070905, end: 20070910
  3. AZITHROMYCIN [Concomitant]
     Indication: PNEUMONIA
     Route: 065
     Dates: start: 20071105, end: 20071111
  4. ACETAMIN-CODEINE [Concomitant]
     Indication: PAIN
     Dosage: 5/500 4 PER DAY
     Route: 065
     Dates: start: 20071031, end: 20071102
  5. MELOXICAM [Concomitant]
     Indication: PRODUCT USED FOR UNKNOWN INDICATION
     Dosage: 15 MG 1 PER DAY
     Route: 065
     Dates: start: 20071031, end: 20071110
  6. IRON/VITAMIN C VITAMIN B12 STOMACH CONCENTRATE [Concomitant]
     Indication: PRODUCT USED FOR UNKNOWN INDICATION
     Route: 065
     Dates: start: 20061004
  7. CLINDAMYCIN [Concomitant]
     Indication: PRODUCT USED FOR UNKNOWN INDICATION
     Route: 065
     Dates: start: 20070723, end: 20070729
  8. DRYSOL [Concomitant]
     Indication: PRODUCT USED FOR UNKNOWN INDICATION
     Dosage: 20% USE DAILY
     Route: 065
     Dates: start: 20070723, end: 20070801
  9. IBUPROFEN [Concomitant]
     Indication: PRODUCT USED FOR UNKNOWN INDICATION
     Dosage: EVERY 8 HOURS
     Route: 065
     Dates: start: 20070418, end: 20070419
  10. HYDROCODONE [Concomitant]
     Indication: PAIN
     Dosage: 1- 2 TABS EVERY 4 HOURS AWS NEEDED
     Route: 065
     Dates: start: 20070831, end: 20070901
  11. TRAMADOL HCL [Concomitant]
     Indication: PRODUCT USED FOR UNKNOWN INDICATION
     Dosage: 50 MG EVERY 6 HOURS AS NEEDED
     Route: 065
     Dates: start: 20070905, end: 20070909

REACTIONS (1)
  - PULMONARY EMBOLISM [None]
